FAERS Safety Report 13993420 (Version 1)
Quarter: 2017Q3

REPORT INFORMATION
  Report Type: Spontaneous
  Country: CA (occurrence: CA)
  Receive Date: 20170920
  Receipt Date: 20170920
  Transmission Date: 20171128
  Serious: Yes (Other)
  Sender: FDA-Public Use
  Company Number: CA-JNJFOC-20170917931

PATIENT
  Sex: Female

DRUGS (6)
  1. ALTEPLASE. [Concomitant]
     Active Substance: ALTEPLASE
     Indication: OEDEMA PERIPHERAL
     Route: 042
  2. HEPARIN [Concomitant]
     Active Substance: HEPARIN SODIUM
     Indication: OEDEMA PERIPHERAL
     Route: 065
  3. XARELTO [Suspect]
     Active Substance: RIVAROXABAN
     Indication: PAGET-SCHROETTER SYNDROME
     Route: 065
  4. XARELTO [Suspect]
     Active Substance: RIVAROXABAN
     Indication: PAGET-SCHROETTER SYNDROME
     Route: 065
  5. HEPARIN [Concomitant]
     Active Substance: HEPARIN SODIUM
     Indication: PAGET-SCHROETTER SYNDROME
     Route: 065
  6. ALTEPLASE. [Concomitant]
     Active Substance: ALTEPLASE
     Indication: PAGET-SCHROETTER SYNDROME
     Route: 042

REACTIONS (3)
  - Hepatocellular injury [Recovered/Resolved]
  - Drug hypersensitivity [Recovered/Resolved]
  - Rash papular [Recovered/Resolved]
